FAERS Safety Report 7906318-X (Version None)
Quarter: 2011Q4

REPORT INFORMATION
  Report Type: 
  Country: None (occurrence: None)
  Receive Date: 20111110
  Receipt Date: 20111107
  Transmission Date: 20120403
  Serious: Yes (Death, Hospitalization, Other)
  Sender: FDA-Public Use
  Company Number: US-AMGEN-USASP2011055777

PATIENT
  Sex: Male
  Weight: 90.703 kg

DRUGS (4)
  1. NPLATE [Suspect]
     Indication: IDIOPATHIC THROMBOCYTOPENIC PURPURA
     Dosage: 1 MUG/KG, QWK
     Route: 058
     Dates: start: 20110406, end: 20110504
  2. RITUXAN [Concomitant]
     Dosage: UNK UNK, QWK
     Route: 042
     Dates: start: 20110519
  3. IMURAN [Concomitant]
     Dosage: UNK UNK, QD
     Route: 048
     Dates: start: 20110504
  4. PREDNISONE TAB [Concomitant]
     Indication: IDIOPATHIC THROMBOCYTOPENIC PURPURA
     Dosage: UNK UNK, BID
     Route: 048
     Dates: start: 20110415

REACTIONS (3)
  - RENAL FAILURE [None]
  - CLOSTRIDIUM DIFFICILE COLITIS [None]
  - DRUG INEFFECTIVE [None]
